FAERS Safety Report 5963349-7 (Version None)
Quarter: 2008Q4

REPORT INFORMATION
  Report Type: 
  Country: None (occurrence: None)
  Receive Date: 20081124
  Receipt Date: 20081117
  Transmission Date: 20090506
  Serious: Yes (Other)
  Sender: FDA-Public Use
  Company Number: A0757703A

PATIENT
  Age: 68 Year
  Sex: Male
  Weight: 68.2 kg

DRUGS (9)
  1. AVANDIA [Suspect]
     Route: 065
  2. CELEXA [Suspect]
     Indication: DEPRESSION
     Dates: start: 20080601
  3. GLYBURIDE [Suspect]
  4. GLUCOPHAGE [Concomitant]
  5. TRENTAL [Concomitant]
  6. ASPIRIN [Concomitant]
  7. EZETIMIBE [Concomitant]
  8. LISINOPRIL [Concomitant]
  9. VALIUM [Concomitant]

REACTIONS (7)
  - BALANCE DISORDER [None]
  - BLOOD GLUCOSE DECREASED [None]
  - CONFUSIONAL STATE [None]
  - DIPLOPIA [None]
  - MOVEMENT DISORDER [None]
  - PARALYSIS [None]
  - TREMOR [None]
